FAERS Safety Report 8076976-0 (Version None)
Quarter: 2012Q1

REPORT INFORMATION
  Report Type: 
  Country: None (occurrence: None)
  Receive Date: 20120127
  Receipt Date: 20120121
  Transmission Date: 20120608
  Serious: Yes (Hospitalization)
  Sender: FDA-Public Use
  Company Number: BR-GLAXOSMITHKLINE-A0961856A

PATIENT
  Sex: Female
  Weight: 74 kg

DRUGS (2)
  1. CEFUROXIME [Suspect]
     Indication: PYELONEPHRITIS
     Dosage: 500MG TWICE PER DAY
     Dates: start: 20120110, end: 20120111
  2. DICLOFENAC SODIUM [Suspect]
     Indication: PRODUCT USED FOR UNKNOWN INDICATION
     Dosage: 70MG TWICE PER DAY
     Dates: start: 20120110, end: 20120111

REACTIONS (7)
  - OEDEMA PERIPHERAL [None]
  - BACK PAIN [None]
  - GASTRITIS [None]
  - FACE OEDEMA [None]
  - HYPERSENSITIVITY [None]
  - PRODUCT QUALITY ISSUE [None]
  - VOMITING [None]
